FAERS Safety Report 9613545 (Version 3)
Quarter: 2014Q2

REPORT INFORMATION
  Report Type: Spontaneous
  Country: IT (occurrence: None)
  Receive Date: 20131008
  Receipt Date: 20140416
  Transmission Date: 20141212
  Serious: Yes (Other)
  Sender: FDA-Public Use
  Company Number: AUR-APL-2013-08160

PATIENT
  Age: 85 Year
  Sex: Male
  Weight: 90 kg

DRUGS (7)
  1. METOPROLOL [Suspect]
     Indication: HYPERTENSION
     Dosage: 100 MG (100MG, 1 IN 1 D), ORAL
     Route: 048
     Dates: start: 20130621, end: 20130920
  2. LASIX (FUROSEMIDE) [Concomitant]
  3. CARDURA (DOXAZOSIN MESILATE) [Concomitant]
  4. OMNIC (TAMSULOSIN HYDROCHLORIDE) [Concomitant]
  5. FOLINA (FOLIC ACID) [Concomitant]
  6. TRIATEC (PANADEINE CO) [Concomitant]
  7. METFORMIN HYDROCHLORIDE (METFORMIN HYDROCHLORIDE) [Concomitant]

REACTIONS (2)
  - Dyspnoea [None]
  - Sleep disorder [None]
